FAERS Safety Report 5981530-8 (Version None)
Quarter: 2008Q4

REPORT INFORMATION
  Report Type: 
  Country: None (occurrence: None)
  Receive Date: 20081202
  Receipt Date: 20081117
  Transmission Date: 20090506
  Serious: Yes (Death, Hospitalization)
  Sender: FDA-Public Use
  Company Number: KV200800271

PATIENT
  Age: 57 Year
  Sex: Female

DRUGS (6)
  1. MORPHINE SULFATE [Suspect]
     Dosage: 15 MG, 1-2 TABS QD, PRN, ORAL
     Route: 048
     Dates: start: 20080510, end: 20080510
  2. OXYGEN (OXYGEN) [Concomitant]
  3. FLUTICASONE PROPIONATE [Concomitant]
  4. PROPOXYPHENE (DEXTROPROPOXYPHENE) [Concomitant]
  5. HYDROCODONE (HYDROCODONE) [Concomitant]
  6. CLOTRIMAZOLE [Concomitant]

REACTIONS (4)
  - ABNORMAL BEHAVIOUR [None]
  - BREAST CANCER [None]
  - DYSPNOEA [None]
  - MALIGNANT NEOPLASM PROGRESSION [None]
